FAERS Safety Report 5989988-5 (Version None)
Quarter: 2008Q4

REPORT INFORMATION
  Report Type: 
  Country: None (occurrence: None)
  Receive Date: 20081209
  Receipt Date: 20081209
  Transmission Date: 20090506
  Serious: Yes (Other)
  Sender: FDA-Public Use
  Company Number: None

PATIENT
  Age: 22 Year
  Sex: Female
  Weight: 88.4514 kg

DRUGS (1)
  1. NUVARING [Suspect]
     Indication: CONTRACEPTION
     Dosage: 1 RING ONCE A MONTH VAG
     Route: 067
     Dates: start: 20080929, end: 20081208

REACTIONS (2)
  - HOT FLUSH [None]
  - PRODUCT QUALITY ISSUE [None]
